FAERS Safety Report 7981589-2 (Version None)
Quarter: 2011Q4

REPORT INFORMATION
  Report Type: 
  Country: None (occurrence: None)
  Receive Date: 20111213
  Receipt Date: 20111202
  Transmission Date: 20120403
  Serious: Yes (Hospitalization, Other)
  Sender: FDA-Public Use
  Company Number: LEO-2011-01012

PATIENT
  Age: 66 Year
  Sex: Female

DRUGS (1)
  1. INNOHEP [Suspect]
     Indication: PRODUCT USED FOR UNKNOWN INDICATION
     Dosage: 0.6 ML, SUBCUTANEOUS
     Route: 058
     Dates: start: 20111017, end: 20111026

REACTIONS (2)
  - PYREXIA [None]
  - DERMATITIS EXFOLIATIVE [None]
